FAERS Safety Report 11495724 (Version 3)
Quarter: 2015Q4

REPORT INFORMATION
  Report Type: Report from Study
  Country: GB (occurrence: GB)
  Receive Date: 20150911
  Receipt Date: 20151130
  Transmission Date: 20160304
  Serious: Yes (Hospitalization, Other)
  Sender: FDA-Public Use
  Company Number: GB-BRISTOL-MYERS SQUIBB COMPANY-BMS-2015-050609

PATIENT
  Sex: Female

DRUGS (3)
  1. ABATACEPT [Suspect]
     Active Substance: ABATACEPT
     Dosage: UNK
     Route: 042
     Dates: start: 201305
  2. ABATACEPT [Suspect]
     Active Substance: ABATACEPT
     Dosage: UNK
     Route: 065
  3. ABATACEPT [Suspect]
     Active Substance: ABATACEPT
     Indication: RHEUMATOID ARTHRITIS
     Dosage: 125 MG, QWK
     Route: 058
     Dates: start: 20150330

REACTIONS (4)
  - Adverse event [Unknown]
  - Cataract [Unknown]
  - Cataract operation [Unknown]
  - Skin cancer [Unknown]
